FAERS Safety Report 6821803-X (Version None)
Quarter: 2010Q3

REPORT INFORMATION
  Report Type: 
  Country: None (occurrence: None)
  Receive Date: 20100707
  Receipt Date: 20100707
  Transmission Date: 20110219
  Serious: No
  Sender: FDA-Public Use
  Company Number: None

PATIENT
  Sex: Female
  Weight: 82.1011 kg

DRUGS (2)
  1. GABAPENTIN [Suspect]
     Indication: TRIGEMINAL NEURALGIA
     Dosage: 400 MG 3 TIMES A DAY PO
     Route: 048
     Dates: start: 20090301, end: 20091001
  2. GABAPENTIN [Suspect]
     Indication: TRIGEMINAL NEURALGIA
     Dosage: 400 MG 3 TIMES A DAY PO
     Route: 048
     Dates: start: 20091101, end: 20091201

REACTIONS (1)
  - DRUG INEFFECTIVE [None]
